FAERS Safety Report 6114386-3 (Version None)
Quarter: 2009Q1

REPORT INFORMATION
  Report Type: 
  Country: None (occurrence: None)
  Receive Date: 20090313
  Receipt Date: 20090311
  Transmission Date: 20090719
  Serious: Yes (Death)
  Sender: FDA-Public Use
  Company Number: NSADSS2003003841

PATIENT
  Sex: Male

DRUGS (9)
  1. DURAGESIC-100 [Suspect]
     Indication: PAIN
     Route: 062
     Dates: start: 20020624
  2. NITRO-DUR [Concomitant]
     Indication: DRUG USE FOR UNKNOWN INDICATION
     Route: 062
  3. BETOPTIC [Concomitant]
     Indication: DRUG USE FOR UNKNOWN INDICATION
     Route: 047
  4. TYLENOL (CAPLET) [Concomitant]
     Indication: DRUG USE FOR UNKNOWN INDICATION
     Route: 048
  5. BISACODYL [Concomitant]
     Indication: DRUG USE FOR UNKNOWN INDICATION
     Route: 054
  6. SODIUM PHOSPHATES [Concomitant]
     Indication: DRUG USE FOR UNKNOWN INDICATION
     Route: 054
  7. MICROLAX [Concomitant]
     Indication: DRUG USE FOR UNKNOWN INDICATION
     Route: 054
  8. MILK OF MAGNESIA [Concomitant]
     Indication: DRUG USE FOR UNKNOWN INDICATION
  9. COMBIVENT [Concomitant]
     Indication: DRUG USE FOR UNKNOWN INDICATION
     Route: 055

REACTIONS (1)
  - CARDIOMYOPATHY [None]
